FAERS Safety Report 24584690 (Version 1)
Quarter: 2024Q4

REPORT INFORMATION
  Report Type: Spontaneous
  Country: US (occurrence: None)
  Receive Date: 20241106
  Receipt Date: 20241106
  Transmission Date: 20250114
  Serious: Yes (Hospitalization)
  Sender: Public
  Company Number: None

PATIENT
  Sex: Female

DRUGS (3)
  1. OPSUMIT [Suspect]
     Active Substance: MACITENTAN
     Indication: Pulmonary arterial hypertension
     Dosage: 10 MG ONCE DAILY PO
     Route: 048
     Dates: start: 202408
  2. TYVASO DPI [Suspect]
     Active Substance: TREPROSTINIL
  3. TYVASO DPI TITRAT KIT POW [Concomitant]

REACTIONS (3)
  - Pneumonia [None]
  - Nausea [None]
  - Diarrhoea [None]
